FAERS Safety Report 8535774-1 (Version None)
Quarter: 2012Q3

REPORT INFORMATION
  Report Type: 
  Country: None (occurrence: None)
  Receive Date: 20120725
  Receipt Date: 20120719
  Transmission Date: 20120928
  Serious: Yes (Hospitalization)
  Sender: FDA-Public Use
  Company Number: PT-009507513-2012SP019180

PATIENT

DRUGS (2)
  1. SPASMOPLEX [Suspect]
     Indication: URINARY INCONTINENCE
     Dosage: UNK UNK, UNKNOWN
     Route: 065
     Dates: start: 20111101
  2. IMPLANON [Suspect]
     Indication: CONTRACEPTION
     Dosage: 1 DF, UNKNOWN
     Route: 065
     Dates: start: 20120105, end: 20120210

REACTIONS (1)
  - HEPATITIS CHOLESTATIC [None]
